FAERS Safety Report 8324359-8 (Version None)
Quarter: 2012Q1

REPORT INFORMATION
  Report Type: 
  Country: None (occurrence: None)
  Receive Date: 20120315
  Receipt Date: 20110518
  Transmission Date: 20120608
  Serious: No
  Sender: FDA-Public Use
  Company Number: PHHY2011US43316

PATIENT
  Age: 52 Year
  Sex: Female

DRUGS (4)
  1. CEPHALXEN (CEFALEXIN) [Concomitant]
  2. GILENYA [Suspect]
     Indication: MULTIPLE SCLEROSIS
     Dosage: 0.5 MG, DAILY, ORAL
     Route: 048
     Dates: start: 20110516
  3. ENABLEX [Concomitant]
  4. ZOLPIDEM [Concomitant]

REACTIONS (2)
  - FEELING ABNORMAL [None]
  - INFLUENZA LIKE ILLNESS [None]
